FAERS Safety Report 23461541 (Version 2)
Quarter: 2025Q1

REPORT INFORMATION
  Report Type: Report from Study
  Country: CA (occurrence: CA)
  Receive Date: 20240131
  Receipt Date: 20250307
  Transmission Date: 20250408
  Serious: Yes (Hospitalization)
  Sender: CHIESI
  Company Number: CA-CHIESI-2024CHF00342

PATIENT
  Sex: Male
  Weight: 45.3 kg

DRUGS (1)
  1. DEFERIPRONE [Suspect]
     Active Substance: DEFERIPRONE
     Indication: Thalassaemia
     Route: 048
     Dates: start: 20170531

REACTIONS (2)
  - Liver disorder [Unknown]
  - Treatment noncompliance [Unknown]
